FAERS Safety Report 8220945-4 (Version None)
Quarter: 2012Q1

REPORT INFORMATION
  Report Type: 
  Country: None (occurrence: None)
  Receive Date: 20120320
  Receipt Date: 20120308
  Transmission Date: 20120608
  Serious: Yes (Other)
  Sender: FDA-Public Use
  Company Number: BR-BRISTOL-MYERS SQUIBB COMPANY-16448573

PATIENT
  Sex: Female

DRUGS (1)
  1. IRBESARTAN + HYDROCHLOROTHIAZIDE [Suspect]
     Dosage: APROZIDE 150MG TABS STARTED ABOUT 7YRS AGO

REACTIONS (2)
  - OSTEOPOROSIS [None]
  - PNEUMONIA [None]
